FAERS Safety Report 8183325-6 (Version None)
Quarter: 2012Q1

REPORT INFORMATION
  Report Type: 
  Country: None (occurrence: None)
  Receive Date: 20120305
  Receipt Date: 20120224
  Transmission Date: 20120608
  Serious: Yes (Hospitalization)
  Sender: FDA-Public Use
  Company Number: US-BAYER-2011-040452

PATIENT
  Age: 34 Year
  Sex: Female
  Weight: 67 kg

DRUGS (5)
  1. YASMIN [Suspect]
     Indication: ORAL CONTRACEPTION
     Dosage: UNK
     Dates: start: 20050401, end: 20060429
  2. METRONIDAZOLE [Concomitant]
     Dosage: UNK
     Dates: start: 20060411, end: 20060413
  3. YASMIN [Suspect]
     Indication: MENORRHAGIA
  4. METRONIDAZOLE [Concomitant]
     Indication: INFECTION
     Dosage: UNK
     Dates: start: 20060207, end: 20060216
  5. IBUPROFEN [Concomitant]
     Dosage: 800 MG, UNK
     Dates: start: 20060305

REACTIONS (11)
  - PAIN IN EXTREMITY [None]
  - PAIN [None]
  - CHEST DISCOMFORT [None]
  - DIZZINESS [None]
  - MUSCLE SPASMS [None]
  - DYSPNOEA [None]
  - EMOTIONAL DISTRESS [None]
  - PULMONARY EMBOLISM [None]
  - GENERAL PHYSICAL HEALTH DETERIORATION [None]
  - ANXIETY [None]
  - MUSCULAR WEAKNESS [None]
